FAERS Safety Report 10381124 (Version 4)
Quarter: 2014Q4

REPORT INFORMATION
  Report Type: Report from Study
  Country: FI (occurrence: FI)
  Receive Date: 20140813
  Receipt Date: 20141015
  Transmission Date: 20150528
  Serious: Yes (Hospitalization, Congenital Anomaly)
  Sender: FDA-Public Use
  Company Number: FI-BIOGENIDEC-2014BI081111

PATIENT
  Sex: Male
  Weight: 2 kg

DRUGS (1)
  1. TYSABRI [Suspect]
     Active Substance: NATALIZUMAB
     Indication: MATERNAL EXPOSURE TIMING UNSPECIFIED
     Route: 064
     Dates: start: 20090224, end: 20131009

REACTIONS (3)
  - Premature delivery [Unknown]
  - Diaphragmatic hernia [Unknown]
  - Foetal exposure during pregnancy [Unknown]
